FAERS Safety Report 7439759-8 (Version None)
Quarter: 2011Q2

REPORT INFORMATION
  Report Type: 
  Country: None (occurrence: None)
  Receive Date: 20110427
  Receipt Date: 20110418
  Transmission Date: 20111010
  Serious: Yes (Other)
  Sender: FDA-Public Use
  Company Number: US-ASTRAZENECA-2011SE22814

PATIENT
  Age: 76 Year
  Sex: Female

DRUGS (2)
  1. CRESTOR [Suspect]
     Route: 048
  2. ANASTROZOLE [Concomitant]

REACTIONS (4)
  - NEOPLASM MALIGNANT [None]
  - CHEMOTHERAPY [None]
  - RADIOTHERAPY [None]
  - SURGERY [None]
